FAERS Safety Report 7918011-8 (Version None)
Quarter: 2011Q4

REPORT INFORMATION
  Report Type: 
  Country: None (occurrence: None)
  Receive Date: 20111116
  Receipt Date: 20111110
  Transmission Date: 20120403
  Serious: Yes (Hospitalization, Other)
  Sender: FDA-Public Use
  Company Number: US-MERCK-1107USA00009

PATIENT
  Age: 70 Year
  Sex: Female
  Weight: 76 kg

DRUGS (8)
  1. PRILOSEC [Concomitant]
     Route: 048
  2. ALENDRONATE SODIUM [Suspect]
     Route: 048
     Dates: start: 20080325, end: 20100112
  3. FOSAMAX [Suspect]
     Route: 048
     Dates: start: 20080325, end: 20100112
  4. ALENDRONATE SODIUM [Suspect]
     Route: 048
     Dates: start: 20100406
  5. FOSAMAX [Suspect]
     Indication: OSTEOPOROSIS
     Route: 048
     Dates: start: 20040206, end: 20080102
  6. FOSAMAX [Suspect]
     Indication: OSTEOPENIA
     Route: 048
     Dates: start: 20040206, end: 20080102
  7. VITAMIN D (UNSPECIFIED) [Concomitant]
     Route: 065
  8. CALCIUM (UNSPECIFIED) [Concomitant]
     Route: 065

REACTIONS (21)
  - VITAMIN D DEFICIENCY [None]
  - HYPERTENSION [None]
  - GALLBLADDER DISORDER [None]
  - TENDON INJURY [None]
  - OSTEOARTHRITIS [None]
  - JUGULAR VEIN DISTENSION [None]
  - ANAEMIA [None]
  - HIP SURGERY [None]
  - ALBUMIN URINE PRESENT [None]
  - FRACTURE NONUNION [None]
  - IMPAIRED HEALING [None]
  - HYPOKALAEMIA [None]
  - MUSCULOSKELETAL DISORDER [None]
  - DYSPNOEA [None]
  - CATARACT [None]
  - OVERDOSE [None]
  - ROTATOR CUFF SYNDROME [None]
  - GASTROOESOPHAGEAL REFLUX DISEASE [None]
  - FEMUR FRACTURE [None]
  - FALL [None]
  - OEDEMA PERIPHERAL [None]
